FAERS Safety Report 18075876 (Version 1)
Quarter: 2020Q3

REPORT INFORMATION
  Report Type: Spontaneous
  Country: US (occurrence: US)
  Receive Date: 20200727
  Receipt Date: 20200727
  Transmission Date: 20201103
  Serious: No
  Sender: FDA-Public Use
  Company Number: US-ABBVIE-20K-163-3316469-00

PATIENT
  Age: 65 Year
  Sex: Female

DRUGS (3)
  1. SYNTHROID [Suspect]
     Active Substance: LEVOTHYROXINE SODIUM
     Indication: HYPERTHYROIDISM
     Route: 048
     Dates: start: 1987
  2. CLONIDINE. [Suspect]
     Active Substance: CLONIDINE
     Indication: HYPERTENSION
     Route: 065
  3. SYNTHROID [Suspect]
     Active Substance: LEVOTHYROXINE SODIUM
     Route: 048
     Dates: start: 1987

REACTIONS (12)
  - Palpitations [Recovered/Resolved]
  - Thyroid disorder [Unknown]
  - Hypertension [Unknown]
  - Unevaluable event [Unknown]
  - Alopecia [Unknown]
  - Hyperventilation [Unknown]
  - Mental disorder [Recovered/Resolved]
  - Diabetes mellitus [Unknown]
  - Blood sodium decreased [Unknown]
  - Nervousness [Recovered/Resolved]
  - Impaired quality of life [Unknown]
  - Stress [Unknown]

NARRATIVE: CASE EVENT DATE: 1990
